FAERS Safety Report 16519132 (Version 1)
Quarter: 2019Q3

REPORT INFORMATION
  Report Type: Spontaneous
  Country: US (occurrence: US)
  Receive Date: 20190522
  Receipt Date: 20190522
  Transmission Date: 20191004
  Serious: Yes (Hospitalization)
  Sender: FDA-Public Use
  Company Number: None

PATIENT
  Age: 73 Year
  Sex: Male
  Weight: 102 kg

DRUGS (2)
  1. AMIODARONE [Suspect]
     Active Substance: AMIODARONE
     Indication: MITRAL VALVE REPAIR
     Route: 048
     Dates: start: 20190418, end: 20190515
  2. AMIODARONE [Suspect]
     Active Substance: AMIODARONE
     Indication: ATRIAL FIBRILLATION
     Route: 048
     Dates: start: 20190418, end: 20190515

REACTIONS (3)
  - Bradycardia [None]
  - Pulmonary toxicity [None]
  - Tachypnoea [None]

NARRATIVE: CASE EVENT DATE: 20190515
